FAERS Safety Report 18897438 (Version 1)
Quarter: 2021Q1

REPORT INFORMATION
  Report Type: Report from Study
  Country: DE (occurrence: DE)
  Receive Date: 20210215
  Receipt Date: 20210215
  Transmission Date: 20210420
  Serious: Yes (Other)
  Sender: FDA-Public Use
  Company Number: DE-SUN PHARMACEUTICAL INDUSTRIES LTD-2021R1-279445

PATIENT
  Sex: Female

DRUGS (9)
  1. MORPHIN SUN [Concomitant]
     Indication: SYSTEMIC MASTOCYTOSIS
     Route: 065
  2. PARACETAMOL [Suspect]
     Active Substance: ACETAMINOPHEN
     Indication: PAIN
     Dosage: 500?1000 MILLIGRAM, DAILY
     Route: 065
  3. PANCREATIN [Concomitant]
     Active Substance: PANCRELIPASE
     Indication: SYSTEMIC MASTOCYTOSIS
     Route: 065
  4. SALBUTAMOL [Concomitant]
     Active Substance: ALBUTEROL
     Indication: SYSTEMIC MASTOCYTOSIS
     Dosage: UNK
     Route: 065
  5. COLESTYRAMIN [Concomitant]
     Active Substance: CHOLESTYRAMINE
     Indication: SYSTEMIC MASTOCYTOSIS
     Route: 065
  6. RANITIDINE. [Concomitant]
     Active Substance: RANITIDINE
     Indication: PRODUCT USED FOR UNKNOWN INDICATION
  7. PREDNISOLONE. [Concomitant]
     Active Substance: PREDNISOLONE
     Indication: SYSTEMIC MASTOCYTOSIS
     Route: 065
  8. BUDESONID SUN [Concomitant]
     Indication: SYSTEMIC MASTOCYTOSIS
     Route: 065
  9. ONDANSETRON [Concomitant]
     Active Substance: ONDANSETRON
     Indication: SYSTEMIC MASTOCYTOSIS
     Route: 065

REACTIONS (2)
  - Exposure during pregnancy [Unknown]
  - Stillbirth [Unknown]
